FAERS Safety Report 14519507 (Version 1)
Quarter: 2018Q1

REPORT INFORMATION
  Report Type: Spontaneous
  Country: US (occurrence: US)
  Receive Date: 20180212
  Receipt Date: 20180212
  Transmission Date: 20180509
  Serious: Yes (Other)
  Sender: FDA-Public Use
  Company Number: US-TEIKOKU PHARMA USA-TPU2018-00055

PATIENT
  Sex: Female
  Weight: 59.02 kg

DRUGS (2)
  1. LIDOCAINE PATCH [Suspect]
     Active Substance: LIDOCAINE
     Indication: NEURALGIA
     Dosage: 2 PATCHES APPLIED A DAY, ONE ON ANKLE AND ONE ON TOP OF FOOT FOR 12 HOURS ON AND 12 HOURS OFF.
     Route: 061
  2. LIDODERM [Suspect]
     Active Substance: LIDOCAINE
     Indication: NEURALGIA
     Dosage: 2 PATCHES APPLIED A DAY, ONE ON ANKLE AND ONE ON TOP OF FOOT FOR 12 HOURS ON AND 12 HOURS OFF.
     Route: 061

REACTIONS (5)
  - Ankle operation [Unknown]
  - Cyst removal [Unknown]
  - Cryotherapy [Unknown]
  - Allergy to surgical sutures [Unknown]
  - Suture removal [Unknown]
